FAERS Safety Report 5120796-3 (Version None)
Quarter: 2006Q4

REPORT INFORMATION
  Report Type: 
  Country: None (occurrence: None)
  Receive Date: 20061005
  Receipt Date: 20051013
  Transmission Date: 20070319
  Serious: Yes (Life-Threatening)
  Sender: FDA-Public Use
  Company Number: JP-SOLVAY-00205003241

PATIENT
  Age: 73 Year
  Sex: Male
  Weight: 52 kg

DRUGS (5)
  1. MEDICON [Concomitant]
     Indication: ILL-DEFINED DISORDER
     Dosage: DAILY DOSE:  UNKNOWN
     Route: 065
  2. PERINDOPRIL ERBUMINE [Suspect]
     Indication: HYPERTENSION
     Dosage: DAILY DOSE: 4 MILLIGRAM(S)
     Route: 048
     Dates: start: 20050514, end: 20050930
  3. NATRIX [Concomitant]
     Indication: ILL-DEFINED DISORDER
     Dosage: DAILY DOSE:  UNKNOWN
     Route: 048
     Dates: start: 20050531
  4. PANALDINE [Suspect]
     Indication: CEREBRAL INFARCTION
     Dosage: DAILY DOSE: 200 MILLIGRAM(S)
     Route: 048
     Dates: start: 20050422, end: 20050930
  5. MAGNESIUM [Concomitant]
     Indication: ILL-DEFINED DISORDER
     Dosage: DAILY DOSE:  UNKNOWN
     Route: 065

REACTIONS (4)
  - BLOOD PRESSURE INCREASED [None]
  - CEREBRAL HAEMORRHAGE [None]
  - FALL [None]
  - RESPIRATORY DISORDER [None]
